FAERS Safety Report 23839257 (Version 2)
Quarter: 2024Q2

REPORT INFORMATION
  Report Type: Report from Study
  Country: GR (occurrence: GR)
  Receive Date: 20240509
  Receipt Date: 20240516
  Transmission Date: 20240716
  Serious: Yes (Hospitalization)
  Sender: FDA-Public Use
  Company Number: GR-ABBVIE-5752012

PATIENT
  Sex: Male
  Weight: 102 kg

DRUGS (19)
  1. CARBIDOPA\LEVODOPA [Suspect]
     Active Substance: CARBIDOPA\LEVODOPA
     Indication: Parkinson^s disease
     Dosage: MORNING DOSE: 6.1ML; CONTINUOUS RATE: 3.1ML/H; EXTRA DOSE: 2.0ML
     Route: 050
     Dates: start: 20200707
  2. CARBIDOPA\LEVODOPA [Suspect]
     Active Substance: CARBIDOPA\LEVODOPA
     Dosage: MORNING DOSE: 9.1ML; CONTINUOUS RATE: 3.1ML/H; EXTRA DOSE: 2.0ML
     Route: 050
  3. CHOLECALCIFEROL [Concomitant]
     Active Substance: CHOLECALCIFEROL
     Indication: Product used for unknown indication
     Dosage: FREQUENCY TEXT: EVERY TUESDAY
     Route: 048
  4. IPRATROPIUM BROMIDE [Concomitant]
     Active Substance: IPRATROPIUM BROMIDE\IPRATROPIUM BROMIDE ANHYDROUS
     Indication: Product used for unknown indication
     Dosage: FREQUENCY TEXT: 3X1( IN THE MORNING,15:00PM,21:30PM)
     Route: 055
  5. ELIQUIS [Concomitant]
     Active Substance: APIXABAN
     Indication: Product used for unknown indication
     Dosage: FREQUENCY TEXT: 2X1, IN THE MORNING + 21:30PM
     Route: 048
  6. ALDACTONE [Concomitant]
     Active Substance: SPIRONOLACTONE
     Indication: Product used for unknown indication
     Dosage: FREQUENCY TEXT: 1X1 (15:00PM)
     Route: 048
  7. LASIX [Concomitant]
     Active Substance: FUROSEMIDE
     Indication: Product used for unknown indication
     Dosage: START DATE TEXT: 2X1, IN THE MORNING + 18:15PM
     Route: 048
  8. B mag [Concomitant]
     Indication: Product used for unknown indication
     Dosage: FREQUENCY TEXT: 1X1 (18:15PM)
     Route: 048
  9. DOZILAX [Concomitant]
     Indication: Product used for unknown indication
     Dosage: FREQUENCY TEXT: 1X1 (15:00PM)
     Route: 048
  10. EBIMEM [Concomitant]
     Indication: Product used for unknown indication
     Dosage: FREQUENCY TEXT: 1X1 (21:30)
     Route: 048
  11. ZOLPIDEM TARTRATE [Concomitant]
     Active Substance: ZOLPIDEM TARTRATE
     Indication: Product used for unknown indication
     Dosage: FREQUENCY TEXT: 1X1 (23:00PM)
     Route: 048
  12. OPRAZIUM [Concomitant]
     Indication: Product used for unknown indication
     Dosage: FREQUENCY TEXT: 1X1 DAYS, 20 MIN BEFORE BREAKFAST
     Route: 048
  13. GLUCOPHAGE [Concomitant]
     Active Substance: METFORMIN HYDROCHLORIDE
     Indication: Product used for unknown indication
     Dosage: FREQUENCY TEXT: 1X1 (21:30PM)
     Route: 048
  14. JANUVIA [Concomitant]
     Active Substance: SITAGLIPTIN PHOSPHATE
     Indication: Product used for unknown indication
     Dosage: FREQUENCY TEXT: (1X1) IN THE MORNING
     Route: 048
  15. Cysticlean [Concomitant]
     Indication: Product used for unknown indication
     Dosage: FREQUENCY TEXT: 1X1 (21:30PM)
     Route: 048
  16. VITAMIN B12 [Concomitant]
     Active Substance: CYANOCOBALAMIN
     Indication: Product used for unknown indication
     Dosage: FREQUENCY TEXT: 1X1 (15:00)
     Route: 048
  17. NEBIVOLOL HYDROCHLORIDE [Concomitant]
     Active Substance: NEBIVOLOL HYDROCHLORIDE
     Indication: Product used for unknown indication
     Dosage: UNIT DOSE:2.5 MG?FORM STRENGTH: 5 MG, FREQUENCY TEXT: (1X1) IN THE MORNING
     Route: 048
  18. AKLONIL [Concomitant]
     Indication: Product used for unknown indication
     Dosage: UNIT DOSE: 0.5 MG?FORM STRENGTH: 2 MG, FREQUENCY TEXT: 1X1 (21:30PM)
     Route: 048
  19. Becloneb [Concomitant]
     Indication: Product used for unknown indication
     Dosage: FREQUENCY TEXT: 2X1( IN THE MORNING, AT 21:30PM)
     Route: 055

REACTIONS (3)
  - Aspiration [Recovered/Resolved]
  - Pyrexia [Recovered/Resolved]
  - Dyspnoea [Recovered/Resolved]
